FAERS Safety Report 8990391 (Version 1)
Quarter: 2012Q4

REPORT INFORMATION
  Report Type: Report from Study
  Country: NO (occurrence: NO)
  Receive Date: 20121228
  Receipt Date: 20121228
  Transmission Date: 20130627
  Serious: Yes (Hospitalization)
  Sender: FDA-Public Use
  Company Number: NO-BAXTER-2012BAX027849

PATIENT
  Age: 45 Year
  Sex: Female
  Weight: 73 kg

DRUGS (6)
  1. SENDOXAN 1000 MG PULVER TIL INJEKSJONSV?SKE, OPPL?SNING [Suspect]
     Indication: BREAST CANCER
     Dates: start: 20100913, end: 20101117
  2. BEVACIZUMAB [Suspect]
     Indication: BREAST CANCER
     Route: 042
  3. FLUOROURACIL [Suspect]
     Indication: BREAST CANCER
     Route: 065
     Dates: start: 20100913, end: 20101117
  4. EPIRUBICIN [Suspect]
     Indication: BREAST CANCER
     Route: 065
     Dates: start: 20100913, end: 20101117
  5. ONDANSETRON [Suspect]
     Indication: DRUG USE FOR UNKNOWN INDICATION
     Route: 065
     Dates: start: 20100913, end: 20101119
  6. DOCETAXEL [Suspect]
     Indication: BREAST CANCER
     Dates: start: 20101207

REACTIONS (2)
  - Rectal haemorrhage [Recovered/Resolved]
  - Febrile neutropenia [Recovered/Resolved]
